FAERS Safety Report 7898798-3 (Version None)
Quarter: 2011Q4

REPORT INFORMATION
  Report Type: 
  Country: None (occurrence: None)
  Receive Date: 20111107
  Receipt Date: 20111027
  Transmission Date: 20120403
  Serious: Yes (Death, Other)
  Sender: FDA-Public Use
  Company Number: US-CELGENEUS-163-20785-11103393

PATIENT
  Sex: Female

DRUGS (4)
  1. THALOMID [Suspect]
     Dosage: 150-50MG
     Route: 048
     Dates: start: 20100101
  2. THALOMID [Suspect]
     Indication: MULTIPLE MYELOMA
     Dosage: 100 MILLIGRAM
     Route: 048
     Dates: start: 20091101
  3. THALOMID [Suspect]
     Dosage: 200 MILLIGRAM
     Route: 048
     Dates: start: 20100401
  4. THALOMID [Suspect]
     Dosage: 100 MILLIGRAM
     Route: 048
     Dates: start: 20110701

REACTIONS (3)
  - DEATH [None]
  - RENAL DISORDER [None]
  - PNEUMONIA [None]
